FAERS Safety Report 12693448 (Version 1)
Quarter: 2016Q3

REPORT INFORMATION
  Report Type: Spontaneous
  Country: PE (occurrence: PE)
  Receive Date: 20160829
  Receipt Date: 20160829
  Transmission Date: 20161109
  Serious: Yes (Other)
  Sender: FDA-Public Use
  Company Number: PE-GLAXOSMITHKLINE-PE2016GSK124251

PATIENT
  Age: 3 Year
  Sex: Male

DRUGS (1)
  1. SERETIDE [Suspect]
     Active Substance: FLUTICASONE PROPIONATE\SALMETEROL XINAFOATE
     Indication: ASTHMA
     Dosage: 50 ?G, QID
     Route: 055
     Dates: start: 20160608

REACTIONS (8)
  - Muscle spasms [Unknown]
  - Hypersensitivity [Recovered/Resolved]
  - Vomiting [Unknown]
  - Asthmatic crisis [Unknown]
  - Rash erythematous [Recovering/Resolving]
  - Cough [Unknown]
  - Productive cough [Unknown]
  - Dyspnoea [Unknown]

NARRATIVE: CASE EVENT DATE: 201608
